FAERS Safety Report 12729020 (Version 2)
Quarter: 2016Q4

REPORT INFORMATION
  Report Type: Spontaneous
  Country: CO (occurrence: CO)
  Receive Date: 20160909
  Receipt Date: 20161110
  Transmission Date: 20170207
  Serious: Yes (Congenital Anomaly)
  Sender: FDA-Public Use
  Company Number: CO-BIOMARINAP-CO-2016-110948

PATIENT
  Age: 8 Year
  Sex: Female
  Weight: 20 kg

DRUGS (3)
  1. DORNASE ALFA [Concomitant]
     Active Substance: DORNASE ALFA
     Indication: PSEUDOMONAS INFECTION
  2. TOBRAMYCIN. [Concomitant]
     Active Substance: TOBRAMYCIN
     Indication: PSEUDOMONAS INFECTION
  3. VIMIZIM [Suspect]
     Active Substance: ELOSULFASE ALFA
     Indication: MUCOPOLYSACCHARIDOSIS IV
     Dosage: 32 MG, QW
     Route: 042
     Dates: start: 201407

REACTIONS (7)
  - Dysphagia [Recovered/Resolved]
  - Influenza like illness [Recovered/Resolved]
  - Rhinorrhoea [Recovered/Resolved]
  - Nasal congestion [Recovered/Resolved]
  - Abdominal pain [Unknown]
  - Headache [Recovered/Resolved]
  - Pyrexia [Unknown]

NARRATIVE: CASE EVENT DATE: 20160829
